FAERS Safety Report 24184227 (Version 1)
Quarter: 2024Q3

REPORT INFORMATION
  Report Type: Spontaneous
  Country: JO (occurrence: JO)
  Receive Date: 20240807
  Receipt Date: 20240807
  Transmission Date: 20241016
  Serious: Yes (Other)
  Sender: PFIZER
  Company Number: JO-PFIZER INC-202400230179

PATIENT
  Sex: Male

DRUGS (1)
  1. LORLATINIB [Suspect]
     Active Substance: LORLATINIB
     Dosage: UNK

REACTIONS (4)
  - Hallucination, visual [Unknown]
  - Hyperlipidaemia [Unknown]
  - Blood pressure increased [Unknown]
  - Liver function test increased [Unknown]
